FAERS Safety Report 9578585 (Version 1)
Quarter: 2013Q4

REPORT INFORMATION
  Report Type: Spontaneous
  Country: US (occurrence: US)
  Receive Date: 20131001
  Receipt Date: 20131001
  Transmission Date: 20140711
  Serious: No
  Sender: FDA-Public Use
  Company Number: US-AMGEN-USASP2013013888

PATIENT
  Sex: Female
  Weight: 53.52 kg

DRUGS (4)
  1. ENBREL [Suspect]
     Indication: PSORIASIS
     Dosage: 50 MG, TWICE A WEEK
     Route: 058
     Dates: end: 201102
  2. MULTIVITAMINS, PLAIN [Concomitant]
     Dosage: UNK
  3. ASPIRIN [Concomitant]
     Dosage: 81 MG, UNK
  4. FISH OIL [Concomitant]
     Dosage: UNK

REACTIONS (1)
  - Psoriasis [Unknown]
